FAERS Safety Report 21723066 (Version 2)
Quarter: 2022Q4

REPORT INFORMATION
  Report Type: Spontaneous
  Country: IN (occurrence: IN)
  Receive Date: 20221213
  Receipt Date: 20221220
  Transmission Date: 20230113
  Serious: Yes (Death, Hospitalization, Other)
  Sender: FDA-Public Use
  Company Number: IN-PFIZER INC-2020094339

PATIENT
  Age: 65 Year
  Sex: Female

DRUGS (10)
  1. PALBOCICLIB [Suspect]
     Active Substance: PALBOCICLIB
     Indication: Breast cancer metastatic
     Dosage: 100 MG, ONCE DAILY, CYCLIC ( D1 - D 21 )
     Route: 048
     Dates: start: 20190607
  2. PALBOCICLIB [Suspect]
     Active Substance: PALBOCICLIB
     Dosage: 100 MG, 1X/DAY
     Route: 048
     Dates: start: 20190707
  3. PALBOCICLIB [Suspect]
     Active Substance: PALBOCICLIB
     Dosage: 100 MG, ONCE DAILY, CYCLIC
     Route: 048
     Dates: start: 20190710
  4. PALBOCICLIB [Suspect]
     Active Substance: PALBOCICLIB
     Dosage: UNK
     Route: 048
     Dates: end: 20221215
  5. LETROZOLE [Concomitant]
     Active Substance: LETROZOLE
     Dosage: 2.5 MG, 1X/DAY
  6. ONDEM [Concomitant]
     Dosage: 8 MG, 2X/DAY
  7. ONDEM [Concomitant]
     Dosage: 8 MG, AS NEEDED
  8. SHELCAL CT [Concomitant]
     Dosage: UNK UNK, 1X/DAY (1 OD)
  9. BECOZYME [BIOTIN;CALCIUM PANTOTHENATE;CYANOCOBALAMIN;NICOTINAMIDE;PYRI [Concomitant]
     Dosage: 10 ML, 2X/DAY (10ML BD 10ML-10ML)
  10. VITCOFOL [CYANOCOBALAMIN;FERROUS FUMARATE;FOLIC ACID;PYRIDOXINE HYDROC [Concomitant]
     Dosage: 10 MG, 2X/DAY (10MG  BD 10ML-10ML)

REACTIONS (9)
  - Death [Fatal]
  - Hypotension [Unknown]
  - Blood glucose increased [Unknown]
  - Pyrexia [Unknown]
  - Nasopharyngitis [Unknown]
  - Feeding disorder [Unknown]
  - Haemoglobin decreased [Unknown]
  - Alopecia [Unknown]
  - Neutrophil count decreased [Unknown]

NARRATIVE: CASE EVENT DATE: 20221215
